FAERS Safety Report 8943511 (Version 2)
Quarter: 2013Q1

REPORT INFORMATION
  Report Type: Spontaneous
  Country: US (occurrence: US)
  Receive Date: 20121204
  Receipt Date: 20130124
  Transmission Date: 20140127
  Serious: No
  Sender: FDA-Public Use
  Company Number: US-PFIZER INC-2012299438

PATIENT
  Age: 84 Year
  Sex: Female
  Weight: 54.42 kg

DRUGS (3)
  1. TOVIAZ [Suspect]
     Indication: URINARY INCONTINENCE
     Dosage: 10 MG, DAILY
     Dates: start: 2012, end: 201211
  2. SENNA [Suspect]
     Indication: CONSTIPATION
     Dosage: UNK
     Route: 048
  3. METOPROLOL [Concomitant]
     Indication: BLOOD PRESSURE ABNORMAL
     Dosage: 5 MG, DAILY

REACTIONS (5)
  - Off label use [Unknown]
  - Drug ineffective [Unknown]
  - Vision blurred [Recovering/Resolving]
  - Abdominal pain upper [Unknown]
  - Constipation [Recovering/Resolving]
